FAERS Safety Report 5351008-3 (Version None)
Quarter: 2007Q2

REPORT INFORMATION
  Report Type: 
  Country: None (occurrence: None)
  Receive Date: 20070608
  Receipt Date: 20070531
  Transmission Date: 20071010
  Serious: Yes (Other)
  Sender: FDA-Public Use
  Company Number: CA-ELI_LILLY_AND_COMPANY-CA200706000560

PATIENT
  Age: 82 Year
  Sex: Male

DRUGS (1)
  1. ZYPREXA [Suspect]
     Indication: AGITATION

REACTIONS (1)
  - ELECTROCARDIOGRAM QT PROLONGED [None]
